FAERS Safety Report 9464457 (Version 4)
Quarter: 2013Q3

REPORT INFORMATION
  Report Type: Report from Study
  Country: DE (occurrence: DE)
  Receive Date: 20130819
  Receipt Date: 20130918
  Transmission Date: 20140515
  Serious: Yes (Hospitalization)
  Sender: FDA-Public Use
  Company Number: DE-CELGENEUS-062-21660-13073567

PATIENT
  Age: 49 Year
  Sex: Female
  Weight: 68 kg

DRUGS (5)
  1. ABRAXANE [Suspect]
     Indication: BREAST CANCER
     Dosage: 236 MILLIGRAM
     Route: 041
     Dates: start: 20130523, end: 20130711
  2. PERTUZUMAB [Suspect]
     Indication: BREAST CANCER
     Dosage: 420 MILLIGRAM
     Route: 041
     Dates: start: 20130523, end: 20130704
  3. TRASTUZUMAB [Suspect]
     Indication: BREAST CANCER
     Dosage: 408 MILLIGRAM
     Route: 041
     Dates: start: 20130523, end: 20130725
  4. TRASTUZUMAB [Suspect]
     Dosage: 408 MILLIGRAM
     Route: 041
     Dates: start: 20130802
  5. ISOZID [Concomitant]
     Indication: PRODUCT USED FOR UNKNOWN INDICATION
     Dosage: 300 MILLIGRAM
     Route: 065
     Dates: start: 20130606

REACTIONS (1)
  - Intestinal haemorrhage [Recovered/Resolved]
